FAERS Safety Report 4594960-6 (Version None)
Quarter: 2005Q1

REPORT INFORMATION
  Report Type: 
  Country: None (occurrence: None)
  Receive Date: 20050223
  Receipt Date: 20050210
  Transmission Date: 20050727
  Serious: Yes (Other)
  Sender: FDA-Public Use
  Company Number: 2005027526

PATIENT
  Age: 72 Year
  Sex: Female

DRUGS (2)
  1. CELEBRA [Suspect]
     Indication: BACK PAIN
     Dosage: 200 MG, AS NECESSARY, ORAL
     Route: 048
     Dates: start: 20041025, end: 20041111
  2. ARTHROTEC [Concomitant]

REACTIONS (2)
  - ASTHMA [None]
  - CONDITION AGGRAVATED [None]
